FAERS Safety Report 16848373 (Version 1)
Quarter: 2019Q3

REPORT INFORMATION
  Report Type: Spontaneous
  Country: CA (occurrence: CA)
  Receive Date: 20190925
  Receipt Date: 20190925
  Transmission Date: 20191005
  Serious: Yes (Other)
  Sender: FDA-Public Use
  Company Number: CA-AUROBINDO-AUR-APL-2015-06183

PATIENT
  Age: 19 Year
  Sex: Male
  Weight: 158.73 kg

DRUGS (6)
  1. MELATONIN [Interacting]
     Active Substance: MELATONIN
     Indication: SLEEP DISORDER
  2. CITALOPRAM [Suspect]
     Active Substance: CITALOPRAM HYDROBROMIDE
     Indication: DEPRESSION
     Dosage: 40 MILLIGRAM, DAILY
     Route: 065
     Dates: start: 200709
  3. NORTRIPTYLINE [Interacting]
     Active Substance: NORTRIPTYLINE
     Indication: NEURALGIA
  4. OXYCONTIN [Interacting]
     Active Substance: OXYCODONE HYDROCHLORIDE
     Indication: NEURALGIA
     Dosage: 40 MILLIGRAM, 1 TO 2 TABLETS TWICE DAILY
     Route: 065
     Dates: start: 200707
  5. MELATONIN [Interacting]
     Active Substance: MELATONIN
     Indication: DELAYED SLEEP PHASE
     Dosage: 3 MILLIGRAM, DAILY
     Route: 065
  6. NORTRIPTYLINE [Interacting]
     Active Substance: NORTRIPTYLINE
     Indication: DEPRESSION
     Dosage: 25 MILLIGRAM, 3 TIMES A DAY
     Route: 065
     Dates: start: 200707

REACTIONS (3)
  - Drug interaction [Recovered/Resolved]
  - Sedation [Recovered/Resolved]
  - Sedation complication [Unknown]

NARRATIVE: CASE EVENT DATE: 200711
